FAERS Safety Report 9064493 (Version 1)
Quarter: 2013Q1

REPORT INFORMATION
  Report Type: Report from Study
  Country: US (occurrence: US)
  Receive Date: 20130128
  Receipt Date: 20130128
  Transmission Date: 20140127
  Serious: Yes (Life-Threatening, Hospitalization)
  Sender: FDA-Public Use
  Company Number: US-JNJFOC-20130112644

PATIENT
  Age: 59 Year
  Sex: Female
  Weight: 55 kg

DRUGS (12)
  1. APAP [Suspect]
     Indication: PRODUCT USED FOR UNKNOWN INDICATION
     Route: 048
     Dates: end: 20130118
  2. BACLOFEN [Concomitant]
     Route: 050
  3. BUPIVACAINE [Concomitant]
     Route: 050
  4. HYDROMORPHONE [Concomitant]
     Route: 050
  5. OXCARBAZEPINE [Concomitant]
     Route: 048
  6. OXYCODONE [Concomitant]
     Route: 048
  7. PROMETHAZINE [Concomitant]
     Route: 048
  8. URECHOLINE [Concomitant]
     Route: 048
  9. RESTORIL [Concomitant]
     Route: 048
  10. PROMETHEGAN [Concomitant]
     Route: 048
  11. LORAZEPAM [Concomitant]
     Route: 048
  12. DIPHENHYDRAMINE [Concomitant]
     Indication: SLEEP DISORDER THERAPY
     Route: 048

REACTIONS (7)
  - Intentional overdose [Unknown]
  - Suicide attempt [Unknown]
  - Coma [Unknown]
  - Liver function test abnormal [Unknown]
  - Metabolic acidosis [Unknown]
  - Blood lactic acid increased [Unknown]
  - Respiratory failure [Unknown]
